FAERS Safety Report 5919119-9 (Version None)
Quarter: 2008Q3

REPORT INFORMATION
  Report Type: 
  Country: None (occurrence: None)
  Receive Date: 20080909
  Receipt Date: 20061227
  Transmission Date: 20090109
  Serious: Yes (Hospitalization)
  Sender: FDA-Public Use
  Company Number: 163-20785-06121208 (0)

PATIENT
  Age: 60 Year
  Sex: Female

DRUGS (12)
  1. THALOMID [Suspect]
     Indication: MULTIPLE MYELOMA
     Dosage: 50 MG, DAILY, ORAL
     Route: 048
  2. MELPHALAN (MELPHALAN) [Suspect]
     Indication: MULTIPLE MYELOMA
     Dosage: 284 MG, SINGLE DOSE, INTRAVENOUS ; 200 MG/M2
     Route: 042
     Dates: start: 20060530
  3. MELPHALAN (MELPHALAN) [Suspect]
     Indication: MULTIPLE MYELOMA
     Dosage: 284 MG, SINGLE DOSE, INTRAVENOUS ; 200 MG/M2
     Route: 042
     Dates: start: 20060913
  4. BORTEZOMIB (BORTEZOMIB) [Suspect]
     Indication: MULTIPLE MYELOMA
  5. DEXAMETHASONE TAB [Suspect]
     Indication: MULTIPLE MYELOMA
  6. FOLIC ACID [Concomitant]
  7. AMBIEN [Concomitant]
  8. NEXIUM [Concomitant]
  9. ACYCLOVIR [Concomitant]
  10. FLAGYL [Concomitant]
  11. ATIVAN [Concomitant]
  12. BENICAR [Concomitant]

REACTIONS (1)
  - PNEUMONITIS [None]
